FAERS Safety Report 8141231-7 (Version None)
Quarter: 2012Q1

REPORT INFORMATION
  Report Type: 
  Country: None (occurrence: None)
  Receive Date: 20120216
  Receipt Date: 20120208
  Transmission Date: 20120608
  Serious: Yes (Other)
  Sender: FDA-Public Use
  Company Number: GB-ROCHE-1020535

PATIENT
  Sex: Female
  Weight: 57 kg

DRUGS (18)
  1. ISOSORBIDE MONONITRATE [Concomitant]
  2. TEMAZEPAM [Concomitant]
  3. LUCENTIS [Suspect]
     Route: 050
     Dates: start: 20110921
  4. PARACETAMOL [Concomitant]
  5. SIMVASTATIN [Concomitant]
  6. LUCENTIS [Suspect]
     Indication: AGE-RELATED MACULAR DEGENERATION
     Route: 050
     Dates: start: 20110518
  7. ALENDRONIC ACID [Concomitant]
  8. LUCENTIS [Suspect]
     Route: 050
     Dates: start: 20110615
  9. NITROGLYCERIN [Concomitant]
     Dosage: SPRAY
  10. BRINZOLAMIDE [Concomitant]
     Dosage: 10 MG/ML
  11. LACTULOSE [Concomitant]
     Route: 048
  12. ALBUTEROL SULFATE AUTOHALER [Concomitant]
  13. SENNA [Concomitant]
  14. BISOPROLOL FUMARATE [Concomitant]
  15. LANZOPRAL [Concomitant]
     Dosage: GASTRO-RESISTANT CAPSULE
  16. ADCAL-D3 [Concomitant]
     Dosage: CHEWABLE
  17. ASPIRIN [Concomitant]
  18. CLOPIDOGREL [Concomitant]

REACTIONS (1)
  - MYOCARDIAL INFARCTION [None]
